FAERS Safety Report 19238241 (Version 4)
Quarter: 2021Q2

REPORT INFORMATION
  Report Type: Spontaneous
  Country: US (occurrence: US)
  Receive Date: 20210510
  Receipt Date: 20210602
  Transmission Date: 20210717
  Serious: No
  Sender: FDA-Public Use
  Company Number: NVSC2021US104009

PATIENT
  Age: 65 Year
  Sex: Male

DRUGS (2)
  1. PATADAY [Suspect]
     Active Substance: OLOPATADINE HYDROCHLORIDE
     Indication: PRODUCT USED FOR UNKNOWN INDICATION
     Dosage: EACH EVENING BEFORE BED FOR ONE MONTH
     Route: 065
  2. PATADAY [Suspect]
     Active Substance: OLOPATADINE HYDROCHLORIDE
     Dosage: 2.5 ML, QD (EVENING BEFORE BED FOR ONE MONTH)
     Route: 065

REACTIONS (1)
  - Drug effect less than expected [Recovered/Resolved]
